FAERS Safety Report 5269742-2 (Version None)
Quarter: 2007Q1

REPORT INFORMATION
  Report Type: 
  Country: None (occurrence: None)
  Receive Date: 20061218
  Receipt Date: 20060509
  Transmission Date: 20070707
  Serious: Yes (Hospitalization)
  Sender: FDA-Public Use
  Company Number: US200606002568

PATIENT
  Age: 80 Year
  Sex: Male

DRUGS (2)
  1. HUMALOG MIX 75/25 [Suspect]
     Indication: DIABETES MELLITUS
     Dosage: SEE IMAGE
     Dates: end: 20060501
  2. LANTUS [Concomitant]

REACTIONS (1)
  - BLOOD GLUCOSE DECREASED [None]
